FAERS Safety Report 8871378 (Version 1)
Quarter: 2012Q4

REPORT INFORMATION
  Report Type: 
  Country: US (occurrence: US)
  Receive Date: 20121026
  Receipt Date: 20121026
  Transmission Date: 20130627
  Serious: No
  Sender: FDA-Public Use
  Company Number: US-AMGEN-USASP2012041234

PATIENT
  Sex: Male
  Weight: 111.11 kg

DRUGS (9)
  1. ENBREL [Suspect]
     Indication: PRODUCT USED FOR UNKNOWN INDICATION
     Dosage: 50 mg, qwk
     Route: 058
  2. LIPITOR [Concomitant]
     Dosage: 20 mg, UNK
  3. MAXAIR [Concomitant]
     Dosage: 200 mug, UNK
  4. LISINOPRIL [Concomitant]
     Dosage: 20 mg, UNK
  5. ADVAIR [Concomitant]
     Dosage: 250/50
  6. ALBUTEROL                          /00139501/ [Concomitant]
     Dosage: 0.63MG/3
  7. DICLOFENAC [Concomitant]
     Dosage: 25 mg, UNK
  8. PERCOCET                           /00446701/ [Concomitant]
     Dosage: UNK (10-325 Mg)
  9. TYLENOL /00020001/ [Concomitant]
     Dosage: 500 mg, UNK

REACTIONS (2)
  - Knee operation [Unknown]
  - Drug ineffective [Unknown]
